FAERS Safety Report 15313412 (Version 1)
Quarter: 2018Q3

REPORT INFORMATION
  Report Type: Spontaneous
  Country: US (occurrence: US)
  Receive Date: 20180823
  Receipt Date: 20180823
  Transmission Date: 20181010
  Serious: No
  Sender: FDA-Public Use
  Company Number: US-BAUSCH-BL-2018-002947

PATIENT
  Age: 76 Year

DRUGS (2)
  1. CROMOLYN SODIUM NASAL SOLUTION USP [Suspect]
     Active Substance: CROMOLYN SODIUM
     Indication: NASAL CONGESTION
     Dosage: ONE SPRAY IN EACH NOSTRIL IN THE MORNING AND AT BEDTIME
     Route: 045
     Dates: start: 20171223, end: 201801
  2. CROMOLYN SODIUM NASAL SOLUTION USP [Suspect]
     Active Substance: CROMOLYN SODIUM
     Dosage: ONE SPRAY IN EACH NOSTRIL IN THE MORNING AND AT BEDTIME
     Route: 045
     Dates: start: 201801

REACTIONS (2)
  - Dizziness [Not Recovered/Not Resolved]
  - Orthostatic hypotension [Unknown]
